FAERS Safety Report 20082465 (Version 1)
Quarter: 2021Q4

REPORT INFORMATION
  Report Type: Spontaneous
  Country: US (occurrence: US)
  Receive Date: 20211117
  Receipt Date: 20211117
  Transmission Date: 20220303
  Serious: Yes (Other)
  Sender: FDA-Public Use
  Company Number: US-NOVARTISPH-NVSC2021US257155

PATIENT
  Age: 87 Year
  Sex: Female

DRUGS (3)
  1. DIGOXIN [Suspect]
     Active Substance: DIGOXIN
     Indication: Atrial fibrillation
     Dosage: 0.125 MG
     Route: 065
  2. DIGOXIN [Suspect]
     Active Substance: DIGOXIN
     Dosage: 0.250 MG
     Route: 065
  3. AMIODARONE [Concomitant]
     Active Substance: AMIODARONE
     Indication: Atrial fibrillation
     Dosage: 300 MG, BID
     Route: 065

REACTIONS (1)
  - Retinal toxicity [Recovering/Resolving]
